FAERS Safety Report 17532092 (Version 1)
Quarter: 2020Q1

REPORT INFORMATION
  Report Type: Report from Study
  Country: CO (occurrence: CO)
  Receive Date: 20200312
  Receipt Date: 20200312
  Transmission Date: 20200409
  Serious: Yes (Other)
  Sender: FDA-Public Use
  Company Number: CO-ROCHE-2522731

PATIENT
  Sex: Male

DRUGS (2)
  1. CARBOPLATIN. [Concomitant]
     Active Substance: CARBOPLATIN
  2. XELODA [Suspect]
     Active Substance: CAPECITABINE
     Indication: PRODUCT USED FOR UNKNOWN INDICATION
     Route: 048

REACTIONS (13)
  - Abdominal pain upper [Unknown]
  - White blood cell count decreased [Unknown]
  - Poisoning [Unknown]
  - Pain in extremity [Unknown]
  - Decreased appetite [Unknown]
  - Feeling abnormal [Unknown]
  - Fatigue [Unknown]
  - Paraesthesia [Unknown]
  - General physical health deterioration [Unknown]
  - Platelet count decreased [Unknown]
  - Somnolence [Unknown]
  - Nail discolouration [Unknown]
  - Asthenia [Unknown]
